FAERS Safety Report 23054929 (Version 1)
Quarter: 2023Q4

REPORT INFORMATION
  Report Type: Spontaneous
  Country: US (occurrence: None)
  Receive Date: 20231010
  Receipt Date: 20231010
  Transmission Date: 20240109
  Serious: Yes (Hospitalization)
  Sender: FDA-Public Use
  Company Number: None

PATIENT
  Age: 31 Year
  Sex: Female

DRUGS (26)
  1. AMBRISENTAN [Suspect]
     Active Substance: AMBRISENTAN
     Indication: Pulmonary hypertension
     Dosage: FREQUENCY : DAILY;?
     Route: 048
     Dates: start: 20220719
  2. TREPROSTINIL [Concomitant]
     Active Substance: TREPROSTINIL
  3. ALPRAZOLAM [Concomitant]
  4. MORPHINE [Concomitant]
  5. ALBUTEROL SULFATE [Concomitant]
     Active Substance: ALBUTEROL SULFATE
  6. NICORETTE [Concomitant]
     Active Substance: NICOTINE
  7. TRAZODONE [Concomitant]
     Active Substance: TRAZODONE HYDROCHLORIDE
  8. OLANZAPINE [Concomitant]
  9. MELATONIN [Concomitant]
  10. OZEMPIC [Concomitant]
     Active Substance: SEMAGLUTIDE
  11. ALBUTEROL [Concomitant]
     Active Substance: ALBUTEROL
  12. ipratropium inhl soln [Concomitant]
  13. MONTELUKAST [Concomitant]
     Active Substance: MONTELUKAST SODIUM
  14. MECLIZINE [Concomitant]
     Active Substance: MECLIZINE HYDROCHLORIDE
  15. FERROUS SULFATE [Concomitant]
     Active Substance: FERROUS SULFATE
  16. DOCUSATE SODIUM [Concomitant]
  17. ONDANSETRON [Concomitant]
     Active Substance: ONDANSETRON
  18. TORSEMIDE [Concomitant]
     Active Substance: TORSEMIDE
  19. BUDESONIDE\FORMOTEROL FUMARATE [Concomitant]
     Active Substance: BUDESONIDE\FORMOTEROL FUMARATE
  20. SPIRIVA RESPIMAT [Concomitant]
     Active Substance: TIOTROPIUM BROMIDE
  21. narcon [Concomitant]
  22. SPIRONOLACTONE [Concomitant]
  23. RIZATRIPTAN [Concomitant]
     Active Substance: RIZATRIPTAN
  24. POTASSIUM CHLORIDE [Concomitant]
     Active Substance: POTASSIUM CHLORIDE
  25. oxygen intranasal [Concomitant]
  26. OXCARBAZEPINE [Concomitant]
     Active Substance: OXCARBAZEPINE

REACTIONS (3)
  - Mental status changes [None]
  - Bacterial sepsis [None]
  - Bacteraemia [None]

NARRATIVE: CASE EVENT DATE: 20231005
